FAERS Safety Report 26047524 (Version 1)
Quarter: 2025Q4

REPORT INFORMATION
  Report Type: Spontaneous
  Country: US (occurrence: None)
  Receive Date: 20251114
  Receipt Date: 20251114
  Transmission Date: 20260117
  Serious: Yes (Life-Threatening, Hospitalization, Disabling, Other)
  Sender: FDA-CTU
  Company Number: None

PATIENT
  Age: 34 Year
  Sex: Female
  Weight: 74.7 kg

DRUGS (1)
  1. MIGRAINE FORMULA [Suspect]
     Active Substance: ACETAMINOPHEN\ASPIRIN\CAFFEINE
     Indication: Migraine
     Dosage: OTHER STRENGTH : MG/MG/MG;?OTHER QUANTITY : 2 CAPSULE(S);?FREQUENCY : DAILY;?
     Route: 048
     Dates: start: 20251108, end: 20251109

REACTIONS (4)
  - Hypoaesthesia [None]
  - Blood pressure increased [None]
  - Expired product administered [None]
  - Bell^s palsy [None]

NARRATIVE: CASE EVENT DATE: 20251109
